FAERS Safety Report 7132655-5 (Version None)
Quarter: 2010Q4

REPORT INFORMATION
  Report Type: 
  Country: None (occurrence: None)
  Receive Date: 20101130
  Receipt Date: 20101130
  Transmission Date: 20110411
  Serious: Yes (Hospitalization)
  Sender: FDA-Public Use
  Company Number: None

PATIENT
  Age: 41 Year
  Sex: Female
  Weight: 52.1637 kg

DRUGS (7)
  1. SULFAMETHOXAZOLE AND TRIMETHOPRIM [Suspect]
     Indication: STAPHYLOCOCCAL INFECTION
     Dosage: 1 TABLET Q 12 HOURS PO
     Route: 048
     Dates: start: 20101108, end: 20101121
  2. PREDNISONE [Concomitant]
  3. SYNTHROID [Concomitant]
  4. SINGULAIR [Concomitant]
  5. TRAZODONE HCL [Concomitant]
  6. ADVAIR DISKUS 100/50 [Concomitant]
  7. QVAR INHALER [Concomitant]

REACTIONS (6)
  - BACK PAIN [None]
  - BLOOD BLISTER [None]
  - EPISTAXIS [None]
  - FATIGUE [None]
  - OROPHARYNGEAL BLISTERING [None]
  - PETECHIAE [None]
